FAERS Safety Report 7900846-9 (Version None)
Quarter: 2011Q4

REPORT INFORMATION
  Report Type: 
  Country: None (occurrence: None)
  Receive Date: 20111108
  Receipt Date: 20111108
  Transmission Date: 20120403
  Serious: No
  Sender: FDA-Public Use
  Company Number: None

PATIENT
  Age: 24 Year
  Sex: Female
  Weight: 53.07 kg

DRUGS (1)
  1. TILIA FE [Suspect]
     Indication: CONTRACEPTION

REACTIONS (5)
  - HEADACHE [None]
  - PRODUCT PACKAGING ISSUE [None]
  - MENSTRUAL DISORDER [None]
  - ABDOMINAL DISTENSION [None]
  - MUSCLE SPASMS [None]
